FAERS Safety Report 4517069-6 (Version None)
Quarter: 2004Q4

REPORT INFORMATION
  Report Type: 
  Country: None (occurrence: None)
  Receive Date: 20041130
  Receipt Date: 20041102
  Transmission Date: 20050328
  Serious: Yes (Other)
  Sender: FDA-Public Use
  Company Number: 2004097388

PATIENT
  Age: 17 Year
  Sex: Female

DRUGS (4)
  1. DEPO-PROVERA [Suspect]
     Indication: CONTRACEPTION
     Dosage: (SINGLE INJECTION), INTRAMUSCULAR
     Route: 030
     Dates: start: 20040330, end: 20040330
  2. BETAMETHASONE/CALCIPOTRIOL (BETAMETHASONE, CALCIPOTRIOL) [Concomitant]
  3. AZITHROMYCIN [Concomitant]
  4. DOXYCYCLINE [Concomitant]

REACTIONS (2)
  - ABORTION SPONTANEOUS [None]
  - DRUG EXPOSURE DURING PREGNANCY [None]
